FAERS Safety Report 6238723-4 (Version None)
Quarter: 2009Q2

REPORT INFORMATION
  Report Type: 
  Country: None (occurrence: None)
  Receive Date: 20090622
  Receipt Date: 20090611
  Transmission Date: 20091009
  Serious: Yes (Other)
  Sender: FDA-Public Use
  Company Number: BE-ASTRAZENECA-2009AC01362

PATIENT
  Age: 937 Month
  Sex: Female

DRUGS (3)
  1. OMEPRAZOLE [Suspect]
     Indication: OESOPHAGITIS
     Route: 048
  2. ENTOCORT EC [Concomitant]
     Route: 065
  3. XYZAL [Concomitant]
     Route: 065

REACTIONS (5)
  - ANAEMIA [None]
  - DRUG INEFFECTIVE [None]
  - GASTRITIS EROSIVE [None]
  - HIATUS HERNIA [None]
  - ULCER HAEMORRHAGE [None]
